FAERS Safety Report 9830931 (Version 4)
Quarter: 2014Q1

REPORT INFORMATION
  Report Type: Report from Study
  Country: IN (occurrence: IN)
  Receive Date: 20140120
  Receipt Date: 20140130
  Transmission Date: 20141002
  Serious: Yes (Hospitalization, Other)
  Sender: FDA-Public Use
  Company Number: PHHY2013IN149223

PATIENT
  Age: 37 Year
  Sex: Male
  Weight: 77 kg

DRUGS (30)
  1. SIMULECT [Suspect]
     Indication: RENAL TRANSPLANT
     Dosage: 20 MG
     Dates: start: 20121024
  2. MYCOPHENOLATE MOFETIL [Suspect]
     Indication: RENAL TRANSPLANT
     Dosage: 2 G PER DAY
     Route: 048
     Dates: start: 20121019, end: 20121026
  3. MYCOPHENOLATE MOFETIL [Suspect]
     Dosage: 2000 MG PER DAY
     Dates: start: 20121024
  4. MYCOPHENOLATE MOFETIL [Suspect]
     Dosage: 2000 MG PER DAY
     Dates: start: 20121105
  5. MYCOPHENOLATE MOFETIL [Suspect]
     Dosage: 1.5 G/DAY
     Route: 048
     Dates: start: 20121120, end: 20121217
  6. MYCOPHENOLATE MOFETIL [Suspect]
     Dosage: 1.5 G PER DAY
     Dates: start: 20121127
  7. MYCOPHENOLATE MOFETIL [Suspect]
     Dosage: 2 G PER DAY
     Route: 048
     Dates: start: 20130123
  8. MYCOPHENOLATE MOFETIL [Suspect]
     Dosage: 2 G PER DAY
     Dates: start: 20130422
  9. MYCOPHENOLATE MOFETIL [Suspect]
     Dosage: 2 G PER DAY
     Dates: start: 20131004
  10. PROGRAF [Suspect]
     Indication: RENAL TRANSPLANT
     Dosage: 6.5 MG, PER DAY
     Dates: start: 20121019
  11. PROGRAF [Suspect]
     Dosage: 5.5 MG, PER DAY
  12. PROGRAF [Suspect]
     Dosage: 3 MG, PER DAY
     Dates: start: 20130422
  13. PROGRAF [Suspect]
     Dosage: 2.5 MG, PER DAY
     Dates: start: 20131004
  14. PREDNISOLONE [Concomitant]
     Indication: RENAL TRANSPLANT
     Dosage: 20 MG, UNK
     Dates: start: 20121019
  15. LEVIPIL [Concomitant]
     Dosage: 250 MG
     Dates: start: 20130422
  16. CARDIVAS [Concomitant]
     Dosage: 50 MG
     Dates: start: 20121024
  17. CARDIVAS [Concomitant]
     Dosage: 6.25 MG, BID
     Dates: start: 20121105
  18. CORTICOSTEROIDS [Concomitant]
     Indication: IMMUNOSUPPRESSION
     Dosage: 20 MG/ DAY
     Dates: start: 20121024
  19. CORTICOSTEROIDS [Concomitant]
     Dosage: 15 MG /DAY
     Dates: start: 20121105
  20. CORTICOSTEROIDS [Concomitant]
     Dosage: 10 MG/DAY
     Dates: start: 20121127
  21. CORTICOSTEROIDS [Concomitant]
     Dosage: 10 MG, ONCE/SINGLE
     Dates: start: 20130123
  22. CORTICOSTEROIDS [Concomitant]
     Dosage: 10 MG/DAY
     Dates: start: 20131004
  23. ARKAMIN [Concomitant]
     Dosage: 0.3 MG/ DAY
     Dates: start: 20121024
  24. ARKAMIN [Concomitant]
     Dosage: 0.1 MG / DAY
     Dates: start: 20121105
  25. ARKAMIN [Concomitant]
     Dosage: 0.1 MG, PER DAY
     Dates: start: 20121127
  26. SOLU MEDROL [Concomitant]
     Dosage: 500 MG/ DAY
     Dates: start: 20121105
  27. OMEZ [Concomitant]
     Dosage: 200 MG, BID
     Dates: start: 20130422
  28. OMEZ [Concomitant]
     Dosage: 200 MG, BID
     Dates: start: 20131004
  29. ECOSPRIN [Concomitant]
     Dosage: 150 MG
     Dates: start: 20130422
  30. ECOSPRIN [Concomitant]
     Dosage: 150 MG, BID
     Dates: start: 20131004

REACTIONS (10)
  - Urinary tract infection [Recovered/Resolved]
  - Pyrexia [Recovered/Resolved]
  - Renal impairment [Recovered/Resolved]
  - Pollakiuria [Recovered/Resolved]
  - Dysuria [Recovered/Resolved]
  - Blood glucose increased [Unknown]
  - Toxicity to various agents [Recovered/Resolved]
  - Kidney transplant rejection [Recovered/Resolved]
  - Dizziness [Recovered/Resolved]
  - Haemoglobin decreased [Unknown]
